FAERS Safety Report 7811231-2 (Version None)
Quarter: 2011Q4

REPORT INFORMATION
  Report Type: 
  Country: None (occurrence: None)
  Receive Date: 20111013
  Receipt Date: 20111005
  Transmission Date: 20120403
  Serious: Yes (Other)
  Sender: FDA-Public Use
  Company Number: DE-UCBSA-042780

PATIENT
  Sex: Female

DRUGS (1)
  1. CIMZIA [Suspect]
     Route: 058

REACTIONS (2)
  - CLOSTRIDIAL INFECTION [None]
  - ABDOMINAL PAIN [None]
